FAERS Safety Report 6692148-6 (Version None)
Quarter: 2010Q2

REPORT INFORMATION
  Report Type: 
  Country: None (occurrence: None)
  Receive Date: 20100422
  Receipt Date: 20090605
  Transmission Date: 20101027
  Serious: No
  Sender: FDA-Public Use
  Company Number: US-ASTRAZENECA-2009UW14490

PATIENT
  Age: 67 Year
  Sex: Female
  Weight: 53.1 kg

DRUGS (3)
  1. METOPROLOL SUCCINATE [Suspect]
     Indication: HYPERTENSION
     Route: 048
     Dates: start: 20090101
  2. CLONIPINE [Concomitant]
  3. PREVACID [Concomitant]

REACTIONS (1)
  - CYANOPSIA [None]
